FAERS Safety Report 13922371 (Version 1)
Quarter: 2017Q3

REPORT INFORMATION
  Report Type: Spontaneous
  Country: US (occurrence: US)
  Receive Date: 20170830
  Receipt Date: 20170830
  Transmission Date: 20171127
  Serious: No
  Sender: FDA-Public Use
  Company Number: US-BEH-2017083142

PATIENT
  Age: 52 Year
  Sex: Female
  Weight: 70.3 kg

DRUGS (20)
  1. HIZENTRA [Suspect]
     Active Substance: HUMAN IMMUNOGLOBULIN G
     Dosage: UNK
     Route: 058
  2. FLUTICASONE. [Concomitant]
     Active Substance: FLUTICASONE
  3. ADVAIR HFA [Concomitant]
     Active Substance: FLUTICASONE PROPIONATE\SALMETEROL XINAFOATE
  4. IPRATROPIUM BROMIDE/ALBUTEROL SULFATE [Concomitant]
     Active Substance: ALBUTEROL SULFATE\IPRATROPIUM BROMIDE
  5. DIPHENHYDRAMINE. [Concomitant]
     Active Substance: DIPHENHYDRAMINE
  6. SINGULAIR [Concomitant]
     Active Substance: MONTELUKAST SODIUM
  7. MEPROBAMATE. [Concomitant]
     Active Substance: MEPROBAMATE
  8. TOPIRAMATE. [Concomitant]
     Active Substance: TOPIRAMATE
  9. AMBIEN [Concomitant]
     Active Substance: ZOLPIDEM TARTRATE
  10. KEPPRA [Concomitant]
     Active Substance: LEVETIRACETAM
  11. HIZENTRA [Suspect]
     Active Substance: HUMAN IMMUNOGLOBULIN G
     Dosage: UNK
     Route: 058
  12. PRAZOSIN. [Concomitant]
     Active Substance: PRAZOSIN
  13. ASPIRIN. [Concomitant]
     Active Substance: ASPIRIN
  14. ATORVASTATIN [Concomitant]
     Active Substance: ATORVASTATIN
  15. HIZENTRA [Suspect]
     Active Substance: HUMAN IMMUNOGLOBULIN G
     Indication: HYPOGAMMAGLOBULINAEMIA
     Dosage: 18 G, QOW
     Route: 058
     Dates: start: 20170201
  16. ACETAMINOPHEN. [Concomitant]
     Active Substance: ACETAMINOPHEN
  17. DOXEPIN [Concomitant]
     Active Substance: DOXEPIN
  18. EPINEPHRINE. [Concomitant]
     Active Substance: EPINEPHRINE
  19. LMX                                /00033401/ [Concomitant]
  20. XANAX [Concomitant]
     Active Substance: ALPRAZOLAM

REACTIONS (1)
  - Bronchitis [Unknown]

NARRATIVE: CASE EVENT DATE: 201708
